FAERS Safety Report 14401526 (Version 1)
Quarter: 2018Q1

REPORT INFORMATION
  Report Type: Spontaneous
  Country: TR (occurrence: TR)
  Receive Date: 20180117
  Receipt Date: 20180117
  Transmission Date: 20180509
  Serious: Yes (Other)
  Sender: FDA-Public Use
  Company Number: PHHY2018TR004142

PATIENT
  Age: 4 Month
  Sex: Male

DRUGS (6)
  1. VANCOMYCIN [Suspect]
     Active Substance: VANCOMYCIN
     Indication: PSEUDOMONAS INFECTION
     Dosage: UNK
     Route: 065
  2. MEROPENEM. [Suspect]
     Active Substance: MEROPENEM
     Indication: PSEUDOMONAS INFECTION
     Dosage: UNK
     Route: 065
  3. CIPROFLOXACIN. [Suspect]
     Active Substance: CIPROFLOXACIN
     Indication: PSEUDOMONAS INFECTION
     Dosage: UNK
     Route: 065
  4. CIPROFLOXACIN. [Suspect]
     Active Substance: CIPROFLOXACIN
     Indication: BRAIN ABSCESS
  5. VANCOMYCIN [Suspect]
     Active Substance: VANCOMYCIN
     Indication: BRAIN ABSCESS
  6. MEROPENEM. [Suspect]
     Active Substance: MEROPENEM
     Indication: BRAIN ABSCESS

REACTIONS (2)
  - Epilepsy [Unknown]
  - Growth retardation [Unknown]
